FAERS Safety Report 8265615 (Version 4)
Quarter: 2013Q4

REPORT INFORMATION
  Report Type: Report from Study
  Country: NL (occurrence: NL)
  Receive Date: 20111128
  Receipt Date: 20131009
  Transmission Date: 20140711
  Serious: Yes (Hospitalization)
  Sender: FDA-Public Use
  Company Number: NL-ROCHE-1014341

PATIENT
  Age: 70 Year
  Sex: Male

DRUGS (3)
  1. CAPECITABINE [Suspect]
     Indication: GASTRIC CANCER
     Dosage: CUMULATIVE DOSE:2X2000 MG
     Route: 048
     Dates: start: 20110929, end: 20111110
  2. EPIRUBICIN [Suspect]
     Indication: GASTRIC CANCER
     Dosage: CUMULATIVE DOSE:294 MG
     Route: 042
     Dates: start: 20110929
  3. CISPLATIN [Suspect]
     Indication: GASTRIC CANCER
     Dosage: CUMULATIVE DOSE:360 MG
     Route: 042
     Dates: start: 20110929

REACTIONS (7)
  - Hyperventilation [Recovered/Resolved]
  - Malaise [Recovered/Resolved]
  - Pyrexia [Recovered/Resolved]
  - Palmar-plantar erythrodysaesthesia syndrome [Recovered/Resolved]
  - Dehydration [Not Recovered/Not Resolved]
  - Mucosal inflammation [Unknown]
  - Neutropenia [Unknown]
